FAERS Safety Report 7717278-9 (Version None)
Quarter: 2011Q3

REPORT INFORMATION
  Report Type: 
  Country: None (occurrence: None)
  Receive Date: 20110818
  Receipt Date: 20110714
  Transmission Date: 20111222
  Serious: No
  Sender: FDA-Public Use
  Company Number: 1000022185

PATIENT
  Age: 31 Year
  Sex: Female

DRUGS (7)
  1. VIIBRYD [Suspect]
     Indication: DEPRESSION
     Dosage: 10 MG (10, 1 IN 1 D), ORAL
     Route: 048
     Dates: start: 20110701, end: 20110701
  2. VIIBRYD [Suspect]
     Indication: ANXIETY
     Dosage: 10 MG (10, 1 IN 1 D), ORAL
     Route: 048
     Dates: start: 20110701, end: 20110701
  3. SINGULAIR (MONTELUKAST SODIUM) (MONTELUKAST SODIUM) [Concomitant]
  4. VIIBRYD [Suspect]
     Indication: ANXIETY
     Dosage: 20 MG (20 MG, 1 IN 1 D), ORAL
     Route: 048
     Dates: start: 20110701, end: 20110714
  5. VIIBRYD [Suspect]
     Indication: DEPRESSION
     Dosage: 20 MG (20 MG, 1 IN 1 D), ORAL
     Route: 048
     Dates: start: 20110701, end: 20110714
  6. KLONOPIN (CLONAZEPAM) (CLONAZEPAM) [Concomitant]
  7. LANSOPRAZOLE [Concomitant]

REACTIONS (5)
  - DIARRHOEA [None]
  - NAUSEA [None]
  - PALPITATIONS [None]
  - VENTRICULAR EXTRASYSTOLES [None]
  - HEART RATE DECREASED [None]
